FAERS Safety Report 6956131-5 (Version None)
Quarter: 2010Q3

REPORT INFORMATION
  Report Type: 
  Country: None (occurrence: None)
  Receive Date: 20100830
  Receipt Date: 20100409
  Transmission Date: 20110219
  Serious: No
  Sender: FDA-Public Use
  Company Number: US-BAUSCH-2010BL001939

PATIENT
  Age: 81 Year
  Sex: Male
  Weight: 51 kg

DRUGS (1)
  1. CROMOLYN SODIUM [Suspect]
     Indication: NASAL CONGESTION
     Route: 045
     Dates: start: 20060101

REACTIONS (1)
  - DRY EYE [None]
